FAERS Safety Report 7564651-8 (Version None)
Quarter: 2011Q2

REPORT INFORMATION
  Report Type: 
  Country: None (occurrence: None)
  Receive Date: 20110622
  Receipt Date: 20100803
  Transmission Date: 20111010
  Serious: Yes (Other)
  Sender: FDA-Public Use
  Company Number: US-MYLANLABS-2010S1014098

PATIENT
  Age: 24 Year
  Sex: Male

DRUGS (5)
  1. ATIVAN [Concomitant]
  2. ZYPREXA [Concomitant]
  3. HALDOL [Concomitant]
  4. COGENTIN [Concomitant]
  5. CLOZAPINE [Suspect]
     Indication: SCHIZOPHRENIA, PARANOID TYPE
     Route: 048
     Dates: end: 20100720

REACTIONS (1)
  - GRANULOCYTOPENIA [None]
